FAERS Safety Report 25336572 (Version 1)
Quarter: 2025Q2

REPORT INFORMATION
  Report Type: Spontaneous
  Country: US (occurrence: US)
  Receive Date: 20250520
  Receipt Date: 20250520
  Transmission Date: 20250717
  Serious: No
  Sender: LEO PHARM
  Company Number: US-LEO Pharma-379605

PATIENT
  Age: 59 Year
  Sex: Female

DRUGS (2)
  1. ADBRY [Suspect]
     Active Substance: TRALOKINUMAB-LDRM
     Indication: Dermatitis atopic
     Dosage: TREATMENT ONGOING
     Route: 058
     Dates: start: 20231116
  2. ADBRY [Suspect]
     Active Substance: TRALOKINUMAB-LDRM
     Indication: Psoriasis
     Dosage: TREATMENT ONGOING
     Route: 058
     Dates: start: 20231116

REACTIONS (2)
  - Dermatitis atopic [Unknown]
  - Psoriasis [Unknown]
